FAERS Safety Report 25378207 (Version 3)
Quarter: 2025Q3

REPORT INFORMATION
  Report Type: Spontaneous
  Country: US (occurrence: US)
  Receive Date: 20250530
  Receipt Date: 20250703
  Transmission Date: 20251021
  Serious: Yes (Death, Other)
  Sender: AMGEN
  Company Number: US-AMGEN-USASP2025104981

PATIENT
  Age: 35 Year
  Sex: Female
  Weight: 91.9 kg

DRUGS (2)
  1. KYPROLIS [Suspect]
     Active Substance: CARFILZOMIB
     Indication: Immune tolerance induction
     Dosage: 40 MILLIGRAM, AS NECESSARY 48 HOURS WEEKLY
     Route: 040
     Dates: start: 20250514, end: 20250521
  2. KYPROLIS [Suspect]
     Active Substance: CARFILZOMIB
     Indication: Off label use

REACTIONS (10)
  - Ischaemic cardiomyopathy [Fatal]
  - Cardiac failure acute [Fatal]
  - Off label use [Unknown]
  - Blood bicarbonate decreased [Unknown]
  - PCO2 increased [Unknown]
  - Haemoglobin decreased [Unknown]
  - Haematocrit decreased [Unknown]
  - Red blood cell count decreased [Unknown]
  - Blood creatinine increased [Unknown]
  - Blood potassium decreased [Unknown]

NARRATIVE: CASE EVENT DATE: 20250501
